FAERS Safety Report 9754887 (Version 1)
Quarter: 2013Q4

REPORT INFORMATION
  Report Type: Spontaneous
  Country: US (occurrence: US)
  Receive Date: 20131213
  Receipt Date: 20131213
  Transmission Date: 20140711
  Serious: No
  Sender: FDA-Public Use
  Company Number: US-GLAXOSMITHKLINE-A1007928A

PATIENT
  Age: 66 Year
  Sex: Female

DRUGS (1)
  1. NICODERM CQ CLEAR 14MG [Suspect]
     Indication: EX-TOBACCO USER
     Dates: start: 20130103

REACTIONS (12)
  - Abdominal discomfort [Not Recovered/Not Resolved]
  - Decreased appetite [Not Recovered/Not Resolved]
  - Hyperhidrosis [Recovered/Resolved]
  - Product quality issue [Unknown]
  - Diarrhoea [Unknown]
  - Abdominal pain upper [Unknown]
  - Dyspepsia [Unknown]
  - Application site erythema [Unknown]
  - Application site pruritus [Unknown]
  - Abdominal pain upper [Unknown]
  - Nicotine dependence [Unknown]
  - Drug administration error [Unknown]
